FAERS Safety Report 13009835 (Version 1)
Quarter: 2016Q4

REPORT INFORMATION
  Report Type: Report from Study
  Country: GB (occurrence: GB)
  Receive Date: 20161208
  Receipt Date: 20161208
  Transmission Date: 20170207
  Serious: Yes (Other)
  Sender: FDA-Public Use
  Company Number: GB-AMGEN-GBRSL2016169104

PATIENT
  Age: 62 Year
  Sex: Male

DRUGS (2)
  1. MIMPARA [Suspect]
     Active Substance: CINACALCET HYDROCHLORIDE
     Dosage: 30 MG, QD
     Route: 065
     Dates: start: 20161121
  2. MIMPARA [Suspect]
     Active Substance: CINACALCET HYDROCHLORIDE
     Indication: PRODUCT USED FOR UNKNOWN INDICATION
     Dosage: 30 MG, ON DIALYSIS DAYS
     Route: 065
     Dates: start: 2015

REACTIONS (3)
  - Thrombosis [Unknown]
  - Muscle spasms [Not Recovered/Not Resolved]
  - Myocardial infarction [Unknown]

NARRATIVE: CASE EVENT DATE: 2015
